APPROVED DRUG PRODUCT: FUROSEMIDE
Active Ingredient: FUROSEMIDE
Strength: 80MG
Dosage Form/Route: TABLET;ORAL
Application: A070100 | Product #001
Applicant: SUN PHARMACEUTICAL INDUSTRIES INC
Approved: Jan 26, 1988 | RLD: No | RS: No | Type: DISCN